FAERS Safety Report 8851340 (Version 2)
Quarter: 2012Q4

REPORT INFORMATION
  Report Type: 
  Country: US (occurrence: US)
  Receive Date: 20121022
  Receipt Date: 20121129
  Transmission Date: 20130627
  Serious: Yes (Hospitalization)
  Sender: FDA-Public Use
  Company Number: US-AMGEN-USASP2012066151

PATIENT
  Age: 58 Year
  Sex: Female
  Weight: 59.41 kg

DRUGS (4)
  1. NEULASTA [Suspect]
     Indication: NEUTROPENIA
     Dosage: 6 mg, q2wk
     Route: 058
     Dates: start: 20120811
  2. ADRIAMYCIN                         /00330901/ [Concomitant]
     Indication: BREAST CANCER STAGE III
     Dosage: 96 mg, q2wk
     Route: 042
     Dates: start: 20120810, end: 20120928
  3. CYCLOPHOSPHAMIDE [Concomitant]
     Indication: BREAST CANCER STAGE III
     Dosage: 960 mg, q2wk
     Route: 042
     Dates: start: 20120810, end: 20120928
  4. PACLITAXEL [Concomitant]
     Indication: BREAST CANCER STAGE III
     Dosage: 280 mg, q2wk
     Route: 042
     Dates: start: 20121026

REACTIONS (4)
  - Acute respiratory distress syndrome [Not Recovered/Not Resolved]
  - Pyrexia [Recovering/Resolving]
  - Cough [Recovering/Resolving]
  - Headache [Recovering/Resolving]
